FAERS Safety Report 24721213 (Version 1)
Quarter: 2024Q4

REPORT INFORMATION
  Report Type: Spontaneous
  Country: US (occurrence: None)
  Receive Date: 20241210
  Receipt Date: 20241210
  Transmission Date: 20250114
  Serious: No
  Sender: Public
  Company Number: None

PATIENT
  Age: 63 Year
  Sex: Female
  Weight: 96.6 kg

DRUGS (10)
  1. DUPIXENT [Suspect]
     Active Substance: DUPILUMAB
     Indication: Neurodermatitis
     Dosage: OTHER FREQUENCY : EVERYOTHERWEEK;?
     Route: 058
     Dates: start: 20240206
  2. AMLODIPINE BESYLATE [Concomitant]
     Active Substance: AMLODIPINE BESYLATE
  3. ATORVASTATIN [Concomitant]
     Active Substance: ATORVASTATIN
  4. Fish Oil 1000mg [Concomitant]
  5. Ginger Root 550mg [Concomitant]
  6. LOSARTAN [Concomitant]
     Active Substance: LOSARTAN
  7. Multivitamin tablets [Concomitant]
  8. Tumeric 500mg [Concomitant]
  9. Vitamin D 1000IU [Concomitant]
  10. TRULICITY [Concomitant]
     Active Substance: DULAGLUTIDE

REACTIONS (1)
  - Paraesthesia [None]

NARRATIVE: CASE EVENT DATE: 20241210
